FAERS Safety Report 18172043 (Version 3)
Quarter: 2020Q4

REPORT INFORMATION
  Report Type: Report from Study
  Country: US (occurrence: US)
  Receive Date: 20200819
  Receipt Date: 20201231
  Transmission Date: 20210113
  Serious: Yes (Other)
  Sender: FDA-Public Use
  Company Number: US-ASTELLAS-2020US027454

PATIENT
  Age: 87 Year
  Sex: Male

DRUGS (1)
  1. ENZALUTAMIDE [Suspect]
     Active Substance: ENZALUTAMIDE
     Indication: PROSTATE CANCER
     Route: 048
     Dates: start: 20200526

REACTIONS (3)
  - Limb discomfort [Not Recovered/Not Resolved]
  - Haemorrhage [Recovering/Resolving]
  - Prostatic pain [Unknown]

NARRATIVE: CASE EVENT DATE: 20200810
